FAERS Safety Report 21026206 (Version 1)
Quarter: 2022Q2

REPORT INFORMATION
  Report Type: Spontaneous
  Country: BD (occurrence: None)
  Receive Date: 20220630
  Receipt Date: 20220630
  Transmission Date: 20220720
  Serious: Yes (Death)
  Sender: FDA-Public Use
  Company Number: BD-ROCHE-3125721

PATIENT
  Age: 38 Year
  Sex: Female

DRUGS (1)
  1. AVASTIN [Suspect]
     Active Substance: BEVACIZUMAB
     Indication: Chordoma
     Route: 065

REACTIONS (3)
  - Central nervous system infection [Fatal]
  - Vomiting [Fatal]
  - Off label use [Unknown]

NARRATIVE: CASE EVENT DATE: 20220610
